FAERS Safety Report 7189884-4 (Version None)
Quarter: 2010Q4

REPORT INFORMATION
  Report Type: 
  Country: None (occurrence: None)
  Receive Date: 20101223
  Receipt Date: 20101213
  Transmission Date: 20110411
  Serious: Yes (Other)
  Sender: FDA-Public Use
  Company Number: US-ELI_LILLY_AND_COMPANY-US201009004736

PATIENT
  Sex: Female

DRUGS (7)
  1. FORTEO [Suspect]
     Indication: OSTEOPOROSIS
     Dosage: 20 UG, DAILY (1/D)
     Dates: start: 20100823
  2. LEVODOPA COMP [Concomitant]
     Indication: PARKINSON'S DISEASE
     Dosage: UNK, UNKNOWN
     Route: 065
  3. COMTAN [Concomitant]
     Indication: PARKINSON'S DISEASE
     Dosage: UNK, UNKNOWN
     Route: 065
  4. NAMENDA [Concomitant]
     Indication: DEMENTIA
     Dosage: UNK, UNKNOWN
     Route: 065
  5. EXOLAN [Concomitant]
     Indication: DEMENTIA
     Dosage: UNK, UNKNOWN
     Route: 065
  6. CALTRATE [Concomitant]
     Indication: MINERAL SUPPLEMENTATION
     Dosage: UNK, UNKNOWN
     Route: 065
  7. VITAMIN D [Concomitant]
     Dosage: UNK, UNKNOWN
     Route: 065

REACTIONS (3)
  - HEPATIC NEOPLASM MALIGNANT [None]
  - INJECTION SITE ERYTHEMA [None]
  - PANCREATIC CARCINOMA [None]
